FAERS Safety Report 6909349-1 (Version None)
Quarter: 2010Q3

REPORT INFORMATION
  Report Type: 
  Country: None (occurrence: None)
  Receive Date: 20100805
  Receipt Date: 20100730
  Transmission Date: 20110219
  Serious: Yes (Death, Hospitalization)
  Sender: FDA-Public Use
  Company Number: PHHY2010FR40017

PATIENT
  Sex: Male
  Weight: 79.5 kg

DRUGS (8)
  1. RASILEZ HCT [Suspect]
     Indication: HYPERTENSION
     Dosage: 300 / 12.5 MG, 1 DF DAILY
     Dates: start: 20100506, end: 20100520
  2. CRESTOR [Concomitant]
     Indication: HYPERCHOLESTEROLAEMIA
     Dosage: 5 MG
  3. KAYEXALATE [Concomitant]
     Indication: HYPERKALAEMIA
  4. HYPERIUM [Concomitant]
     Indication: HYPERTENSION
     Dosage: 1 MG
  5. KARDEGIC [Concomitant]
     Indication: CARDIOVASCULAR DISORDER
     Dosage: 75 MG
  6. COLCHICINE [Concomitant]
     Indication: GOUT
     Dosage: 0.25 MICROG
  7. ROCALTROL [Concomitant]
     Dosage: 0.25 MICROG
  8. PLAVIX [Concomitant]
     Indication: CARDIOVASCULAR DISORDER
     Dosage: 75 MG

REACTIONS (6)
  - ASCITES [None]
  - CARDIAC FAILURE [None]
  - DYSPNOEA [None]
  - FATIGUE [None]
  - GENERALISED OEDEMA [None]
  - RENAL FAILURE [None]
